FAERS Safety Report 17409996 (Version 1)
Quarter: 2020Q1

REPORT INFORMATION
  Report Type: Spontaneous
  Country: GB (occurrence: GB)
  Receive Date: 20200212
  Receipt Date: 20200212
  Transmission Date: 20200409
  Serious: Yes (Other)
  Sender: FDA-Public Use
  Company Number: GB-PFIZER INC-2020060462

PATIENT
  Age: 74 Year
  Sex: Female

DRUGS (6)
  1. APIXABAN [Concomitant]
     Active Substance: APIXABAN
     Dosage: UNK
  2. LOSARTAN. [Concomitant]
     Active Substance: LOSARTAN
     Dosage: UNK
  3. SALBUTAMOL [Concomitant]
     Active Substance: ALBUTEROL
     Dosage: UNK
  4. SYMBICORT [Concomitant]
     Active Substance: BUDESONIDE\FORMOTEROL FUMARATE DIHYDRATE
     Dosage: UNK
  5. AZITHROMYCIN ANHYDROUS. [Suspect]
     Active Substance: AZITHROMYCIN ANHYDROUS
     Indication: LOWER RESPIRATORY TRACT INFECTION
     Dosage: 1500 MG, WEEKLY
     Route: 048
     Dates: start: 20191204, end: 20200104
  6. FLECAINIDE ACETATE. [Concomitant]
     Active Substance: FLECAINIDE ACETATE
     Dosage: UNK

REACTIONS (1)
  - Hallucination, visual [Recovered/Resolved]
